FAERS Safety Report 6041708-4 (Version None)
Quarter: 2009Q1

REPORT INFORMATION
  Report Type: 
  Country: None (occurrence: None)
  Receive Date: 20090116
  Receipt Date: 20090113
  Transmission Date: 20090719
  Serious: Yes (Other)
  Sender: FDA-Public Use
  Company Number: JP-WYE-H07672309

PATIENT
  Age: 72 Year
  Sex: Male

DRUGS (1)
  1. HYPEN [Suspect]
     Dosage: UNSPECIFIED
     Route: 048
     Dates: start: 20051101, end: 20061101

REACTIONS (1)
  - INTERSTITIAL LUNG DISEASE [None]
